FAERS Safety Report 4655029-5 (Version None)
Quarter: 2005Q2

REPORT INFORMATION
  Report Type: 
  Country: None (occurrence: None)
  Receive Date: 20050506
  Receipt Date: 20050428
  Transmission Date: 20051028
  Serious: Yes (Disabling)
  Sender: FDA-Public Use
  Company Number: BR-ABBOTT-05P-020-0299290-00

PATIENT
  Age: 39 Year
  Sex: Male

DRUGS (4)
  1. NORVIR [Suspect]
     Indication: HIV INFECTION
     Route: 048
  2. TIPRANAVIR [Suspect]
     Indication: HIV INFECTION
     Route: 048
  3. ABACAVIR [Concomitant]
     Indication: HIV INFECTION
  4. DIDANOSINE [Concomitant]
     Indication: HIV INFECTION

REACTIONS (2)
  - NERVOUS SYSTEM DISORDER [None]
  - SPEECH DISORDER [None]
